FAERS Safety Report 24590252 (Version 1)
Quarter: 2024Q4

REPORT INFORMATION
  Report Type: Spontaneous
  Country: US (occurrence: US)
  Receive Date: 20241107
  Receipt Date: 20241107
  Transmission Date: 20250114
  Serious: Yes (Life-Threatening, Hospitalization, Other)
  Sender: PFIZER
  Company Number: US-PFIZER INC-202400293726

PATIENT
  Age: 37 Year
  Sex: Female
  Weight: 46.27 kg

DRUGS (2)
  1. BLEOMYCIN SULFATE [Suspect]
     Active Substance: BLEOMYCIN SULFATE
     Dosage: UNK
     Route: 042
     Dates: start: 20240714, end: 20240903
  2. LEXAPRO [Concomitant]
     Active Substance: ESCITALOPRAM OXALATE
     Indication: Anxiety
     Dosage: UNK

REACTIONS (3)
  - Pulmonary fibrosis [Not Recovered/Not Resolved]
  - Pulmonary air leakage [Not Recovered/Not Resolved]
  - Cerebral haemorrhage [Unknown]

NARRATIVE: CASE EVENT DATE: 20241001
